FAERS Safety Report 5919611-7 (Version None)
Quarter: 2008Q4

REPORT INFORMATION
  Report Type: 
  Country: None (occurrence: None)
  Receive Date: 20081015
  Receipt Date: 20080728
  Transmission Date: 20090506
  Serious: No
  Sender: FDA-Public Use
  Company Number: US-BRISTOL-MYERS SQUIBB COMPANY-14280143

PATIENT
  Sex: Female

DRUGS (1)
  1. KENALOG-40 [Suspect]
     Indication: BACK PAIN
     Dosage: HAD 3 INJECTION.
     Route: 008

REACTIONS (3)
  - BACK PAIN [None]
  - INJECTION SITE PAIN [None]
  - TREMOR [None]
